FAERS Safety Report 7790206-6 (Version None)
Quarter: 2011Q3

REPORT INFORMATION
  Report Type: 
  Country: None (occurrence: None)
  Receive Date: 20110930
  Receipt Date: 20100811
  Transmission Date: 20111222
  Serious: Yes (Hospitalization, Other)
  Sender: FDA-Public Use
  Company Number: US-BAYER-201012513NA

PATIENT
  Age: 22 Year
  Sex: Female
  Weight: 54.422 kg

DRUGS (16)
  1. PERCOCET [Concomitant]
     Indication: ABDOMINAL PAIN
  2. YASMIN [Suspect]
     Dosage: UNK
     Dates: start: 20060624, end: 20090101
  3. IBUPROFEN (ADVIL) [Concomitant]
     Dosage: UNK
     Dates: start: 20050101
  4. AMOXICILLIN [Concomitant]
     Dosage: 500 MG, QID
     Dates: start: 20060525
  5. YAZ [Suspect]
     Dosage: UNK
     Dates: start: 20080701, end: 20081101
  6. YAZ [Suspect]
  7. AMOXICILLIN [Concomitant]
  8. ASCORBIC ACID [Concomitant]
     Dosage: UNK
     Dates: start: 20050101
  9. YAZ [Suspect]
     Indication: CONTRACEPTION
     Dosage: UNK
     Route: 048
     Dates: start: 20060601, end: 20070401
  10. OXYCODONE [Concomitant]
     Indication: PAIN
  11. PROVERA [Concomitant]
     Indication: CONTRACEPTION
  12. POTASSIUM [Concomitant]
     Dosage: UNK
     Dates: start: 20070101, end: 20080101
  13. HYDROCODONE [Concomitant]
     Indication: ABDOMINAL PAIN
  14. YAZ [Suspect]
     Dosage: UNK
     Dates: start: 20070901, end: 20080501
  15. YAZ [Suspect]
     Dosage: UNK
     Dates: start: 20090101, end: 20090901
  16. COMBUNOX [Concomitant]

REACTIONS (16)
  - SCAR [None]
  - NAUSEA [None]
  - VOMITING [None]
  - ABDOMINAL PAIN [None]
  - FLATULENCE [None]
  - DIARRHOEA [None]
  - BARRETT'S OESOPHAGUS [None]
  - CHEST PAIN [None]
  - GALLBLADDER DISORDER [None]
  - ABDOMINAL DISTENSION [None]
  - DYSPEPSIA [None]
  - CONSTIPATION [None]
  - IRRITABLE BOWEL SYNDROME [None]
  - CHOLECYSTITIS CHRONIC [None]
  - DEPRESSION [None]
  - ANXIETY [None]
